FAERS Safety Report 19450201 (Version 5)
Quarter: 2021Q4

REPORT INFORMATION
  Report Type: Spontaneous
  Country: JP (occurrence: JP)
  Receive Date: 20210622
  Receipt Date: 20211004
  Transmission Date: 20220303
  Serious: Yes (Hospitalization, Other)
  Sender: FDA-Public Use
  Company Number: JP-ONO-2021JP014615

PATIENT
  Age: 73 Year
  Sex: Male
  Weight: 61.5 kg

DRUGS (11)
  1. BRAFTOVI [Suspect]
     Active Substance: ENCORAFENIB
     Indication: Colon cancer
     Dosage: 300 MG, 1X/DAY (EVERYDAY)
     Route: 048
     Dates: start: 20210426, end: 20210516
  2. BRAFTOVI [Suspect]
     Active Substance: ENCORAFENIB
     Dosage: 300 MG, 1X/DAY (EVERYDAY)
     Route: 048
     Dates: start: 20210524
  3. MEKTOVI [Suspect]
     Active Substance: BINIMETINIB
     Indication: Colon cancer
     Dosage: 45 MG, 2X/DAY (Q12H)
     Route: 048
     Dates: start: 20210426, end: 20210516
  4. MEKTOVI [Suspect]
     Active Substance: BINIMETINIB
     Dosage: 45 MG, 2X/DAY (Q12H)
     Route: 048
     Dates: start: 20210524
  5. AMLODIPINE BESYLATE [Suspect]
     Active Substance: AMLODIPINE BESYLATE
     Indication: Hypertension
     Dosage: 5 MG, 1X/DAY (EVERYDAY)
     Route: 048
     Dates: end: 20210517
  6. CANDESARTAN CILEXETIL [Suspect]
     Active Substance: CANDESARTAN CILEXETIL
     Indication: Hypertension
     Dosage: 12 MG, 1X/DAY (EVERYDAY)
     Route: 048
     Dates: end: 20210517
  7. ERBITUX [Suspect]
     Active Substance: CETUXIMAB
     Indication: Colon cancer
     Dosage: 600 MG
     Route: 041
     Dates: start: 20210426, end: 20210516
  8. HERBALS [Concomitant]
     Active Substance: HERBALS
     Indication: Prophylaxis
     Dosage: 2.5 G, 3X/DAY (Q8H)
     Route: 048
     Dates: start: 20210510
  9. EDOXABAN TOSYLATE [Concomitant]
     Active Substance: EDOXABAN TOSYLATE
     Dosage: 30 MG, 1X/DAY (EVERYDAY)
     Route: 048
     Dates: start: 20210510, end: 20210801
  10. LYRICA [Concomitant]
     Active Substance: PREGABALIN
     Dosage: 75 MG, 1X/DAY (EVERYDAY)
     Route: 048
     Dates: start: 20210531
  11. MINOCYCLINE HYDROCHLORIDE [Concomitant]
     Active Substance: MINOCYCLINE HYDROCHLORIDE
     Indication: Prophylaxis
     Dosage: 100 MG, 1X/DAY (EVERYDAY)
     Route: 048
     Dates: start: 20210426

REACTIONS (8)
  - Loss of consciousness [Recovering/Resolving]
  - Hypotension [Recovering/Resolving]
  - Orthostatic hypotension [Recovering/Resolving]
  - Loss of consciousness [Recovering/Resolving]
  - Loss of consciousness [Recovered/Resolved]
  - Iron deficiency anaemia [Not Recovered/Not Resolved]
  - Diarrhoea [Not Recovered/Not Resolved]
  - Papule [Not Recovered/Not Resolved]

NARRATIVE: CASE EVENT DATE: 20210517
